FAERS Safety Report 21462365 (Version 3)
Quarter: 2023Q1

REPORT INFORMATION
  Report Type: Report from Study
  Country: DE (occurrence: None)
  Receive Date: 20221016
  Receipt Date: 20230224
  Transmission Date: 20230417
  Serious: Yes (Hospitalization)
  Sender: FDA-Public Use
  Company Number: DE-ROCHE-3198025

PATIENT
  Age: 72 Year
  Sex: Female
  Weight: 52 kg

DRUGS (9)
  1. ATEZOLIZUMAB [Suspect]
     Active Substance: ATEZOLIZUMAB
     Indication: Triple negative breast cancer
     Dosage: ON 09/JUN/2022 AND 22/JUL/2022, 02/SEP/2022 DATE OF LAST DOSE PRIOR TO SAE
     Route: 041
     Dates: start: 20220609
  2. PACLITAXEL [Suspect]
     Active Substance: PACLITAXEL
     Indication: Triple negative breast cancer
     Dosage: ON 24/JUN/2022, 22/JUL/2022, RECEIVED DATE OF LAST DOSE PRIOR TO SAE
     Route: 042
     Dates: start: 20220609
  3. CARBOPLATIN [Suspect]
     Active Substance: CARBOPLATIN
     Indication: Triple negative breast cancer
     Dosage: ON 24/JUN/2022, 26/AUG/2022 DATE OF LAST DOSE PRIOR TO SAE
     Route: 042
     Dates: start: 20220609
  4. CHOLECALCIFEROL [Concomitant]
     Active Substance: CHOLECALCIFEROL
     Dosage: 20000 IE WEEKLY
  5. ASPIRIN [Concomitant]
     Active Substance: ASPIRIN
     Dosage: 100 MG ONCE DAILY
     Dates: start: 2010
  6. METOPROLOL SUCCINATE [Concomitant]
     Active Substance: METOPROLOL SUCCINATE
     Dosage: 95 MG TWICE DAILY
     Dates: start: 2010
  7. RAMIPRIL [Concomitant]
     Active Substance: RAMIPRIL
     Dosage: 2.5 MG ONCE DAILY
  8. FERROUS GLUCONATE [Concomitant]
     Active Substance: FERROUS GLUCONATE
     Dosage: 80.5 MG AS NEEDED
  9. MAGNESIUM [Concomitant]
     Active Substance: MAGNESIUM
     Dosage: 300 NA AS NEEDED

REACTIONS (1)
  - Pyrexia [Recovered/Resolved]

NARRATIVE: CASE EVENT DATE: 20220910
